FAERS Safety Report 7555467-7 (Version None)
Quarter: 2011Q2

REPORT INFORMATION
  Report Type: 
  Country: None (occurrence: None)
  Receive Date: 20110617
  Receipt Date: 20110530
  Transmission Date: 20111010
  Serious: Yes (Death, Congenital Anomaly, Other)
  Sender: FDA-Public Use
  Company Number: US-WATSON-2011-07211

PATIENT

DRUGS (3)
  1. ATENOLOL [Suspect]
     Indication: HYPERTENSION
     Dosage: 75 MG, DAILY
     Route: 064
  2. VALSARTAN [Suspect]
     Indication: HYPERTENSION
     Dosage: 80 MG, DAILY
     Route: 064
  3. LOSARTAN POTASSIUM [Suspect]
     Indication: PRODUCT USED FOR UNKNOWN INDICATION
     Dosage: UNK
     Route: 064

REACTIONS (11)
  - PULMONARY HYPOPLASIA [None]
  - NEONATAL HYPOTENSION [None]
  - DEFORMITY [None]
  - SKULL MALFORMATION [None]
  - OLIGOHYDRAMNIOS [None]
  - ANURIA [None]
  - PLACENTAL DISORDER [None]
  - RENAL DISORDER [None]
  - INTRA-UTERINE DEATH [None]
  - DRUG EXPOSURE DURING PREGNANCY [None]
  - LIMB DEFORMITY [None]
